FAERS Safety Report 5624170-2 (Version None)
Quarter: 2008Q1

REPORT INFORMATION
  Report Type: 
  Country: None (occurrence: None)
  Receive Date: 20080213
  Receipt Date: 20080204
  Transmission Date: 20080703
  Serious: Yes (Other)
  Sender: FDA-Public Use
  Company Number: PHBS2008FR01770

PATIENT

DRUGS (5)
  1. CARBAMAZEPINE [Suspect]
     Route: 065
  2. CLARITHROMYCIN [Suspect]
     Route: 065
  3. LANZOPRAZOL [Concomitant]
  4. VIGABATRIN [Concomitant]
  5. AMOXICILLIN [Concomitant]

REACTIONS (4)
  - ANTICONVULSANT DRUG LEVEL INCREASED [None]
  - COORDINATION ABNORMAL [None]
  - DIPLOPIA [None]
  - DRUG INTERACTION [None]
